FAERS Safety Report 24063210 (Version 4)
Quarter: 2025Q3

REPORT INFORMATION
  Report Type: Spontaneous
  Country: US (occurrence: US)
  Receive Date: 20240709
  Receipt Date: 20250810
  Transmission Date: 20251020
  Serious: No
  Sender: ALEXION PHARMACEUTICALS
  Company Number: 2024A146037

PATIENT
  Age: 71 Year
  Sex: Female

DRUGS (3)
  1. FASENRA [Suspect]
     Active Substance: BENRALIZUMAB
  2. FASENRA [Suspect]
     Active Substance: BENRALIZUMAB
  3. MACROBID [Concomitant]
     Active Substance: NITROFURANTOIN\NITROFURANTOIN MONOHYDRATE

REACTIONS (5)
  - Dysuria [Unknown]
  - Urinary tract infection [Unknown]
  - Urethral pain [Unknown]
  - Abdominal pain upper [Unknown]
  - Urine abnormality [Unknown]

NARRATIVE: CASE EVENT DATE: 20240101
